FAERS Safety Report 20605969 (Version 2)
Quarter: 2023Q1

REPORT INFORMATION
  Report Type: Report from Study
  Country: FR (occurrence: FR)
  Receive Date: 20220317
  Receipt Date: 20230314
  Transmission Date: 20230418
  Serious: Yes (Other)
  Sender: FDA-Public Use
  Company Number: FR-JNJFOC-20220321720

PATIENT

DRUGS (3)
  1. SIMPONI [Suspect]
     Active Substance: GOLIMUMAB
     Indication: Colitis ulcerative
     Route: 058
  2. SIMPONI [Suspect]
     Active Substance: GOLIMUMAB
     Route: 058
  3. SIMPONI [Suspect]
     Active Substance: GOLIMUMAB
     Route: 058

REACTIONS (13)
  - Infection [Unknown]
  - Therapeutic response decreased [Unknown]
  - Bronchitis [Unknown]
  - Sinusitis [Unknown]
  - Headache [Unknown]
  - Arthralgia [Unknown]
  - Skin disorder [Unknown]
  - Nausea [Unknown]
  - Chest pain [Unknown]
  - Blepharitis [Unknown]
  - Visual impairment [Unknown]
  - Fatigue [Unknown]
  - Pharyngitis [Unknown]
